FAERS Safety Report 12392934 (Version 2)
Quarter: 2016Q2

REPORT INFORMATION
  Report Type: Report from Study
  Country: SV (occurrence: SV)
  Receive Date: 20160523
  Receipt Date: 20160530
  Transmission Date: 20160815
  Serious: Yes (Death, Other)
  Sender: FDA-Public Use
  Company Number: PHHY2016SV070626

PATIENT
  Age: 26 Year
  Sex: Male
  Weight: 71 kg

DRUGS (10)
  1. IMIPENEM [Concomitant]
     Active Substance: IMIPENEM
     Indication: PRODUCT USED FOR UNKNOWN INDICATION
     Dosage: 500 MG, Q6H
     Route: 042
     Dates: start: 20160416
  2. CITARABINA [Concomitant]
     Active Substance: CYTARABINE
     Dosage: 3500 MG, Q12H
     Route: 042
     Dates: start: 20160410
  3. MITOXANTRONA [Concomitant]
     Indication: CHEMOTHERAPY
     Dosage: 20 MG, QD
     Route: 065
     Dates: start: 20160408
  4. GLIVEC [Suspect]
     Active Substance: IMATINIB MESYLATE
     Indication: PHILADELPHIA CHROMOSOME POSITIVE
     Dosage: 600 MG, QD
     Route: 065
     Dates: start: 20151013
  5. GLIVEC [Suspect]
     Active Substance: IMATINIB MESYLATE
     Dosage: 800 MG, QD
     Route: 065
     Dates: start: 20151214, end: 20160423
  6. GLIVEC [Suspect]
     Active Substance: IMATINIB MESYLATE
     Indication: ACUTE LYMPHOCYTIC LEUKAEMIA
     Dosage: 400 MG, QD
     Route: 065
     Dates: start: 20151020
  7. VANCOMICINA [Concomitant]
     Active Substance: VANCOMYCIN
     Indication: PRODUCT USED FOR UNKNOWN INDICATION
     Dosage: 1 G, Q12H
     Route: 065
  8. CITARABINA [Concomitant]
     Active Substance: CYTARABINE
     Indication: CHEMOTHERAPY
     Dosage: 3500 MG, Q12H
     Route: 042
     Dates: start: 20160408
  9. CITARABINA [Concomitant]
     Active Substance: CYTARABINE
     Dosage: 3500 MG, Q12H
     Route: 042
     Dates: start: 20160412
  10. MITOXANTRONA [Concomitant]
     Dosage: 20 MG, QD
     Route: 065

REACTIONS (9)
  - Blood potassium decreased [Unknown]
  - Septic shock [Fatal]
  - Infection [Fatal]
  - Bone marrow failure [Unknown]
  - Acute leukaemia [Unknown]
  - Blood creatinine increased [Unknown]
  - White blood cell count decreased [Unknown]
  - Haemoglobin decreased [Unknown]
  - Red blood cell count decreased [Unknown]

NARRATIVE: CASE EVENT DATE: 20160424
